FAERS Safety Report 8804419 (Version 3)
Quarter: 2012Q4

REPORT INFORMATION
  Report Type: Report from Study
  Country: BR (occurrence: BR)
  Receive Date: 20120923
  Receipt Date: 20121120
  Transmission Date: 20130627
  Serious: Yes (Hospitalization)
  Sender: FDA-Public Use
  Company Number: BR-US-EMD SERONO, INC.-7156082

PATIENT
  Age: 41 Year
  Sex: Female

DRUGS (8)
  1. REBIF [Suspect]
     Indication: RELAPSING-REMITTING MULTIPLE SCLEROSIS
     Route: 058
     Dates: start: 20111124
  2. PROPANOLOL [Concomitant]
     Indication: PRODUCT USED FOR UNKNOWN INDICATION
  3. MEVILIP (SIMVASTATIN) [Concomitant]
     Indication: PRODUCT USED FOR UNKNOWN INDICATION
  4. SOMALGIN CARDIO [Concomitant]
     Indication: PRODUCT USED FOR UNKNOWN INDICATION
  5. NIMODIPINE [Concomitant]
     Indication: PRODUCT USED FOR UNKNOWN INDICATION
  6. COMPLEX B VITAMINS [Concomitant]
     Indication: PRODUCT USED FOR UNKNOWN INDICATION
  7. SIMVASTATIN [Concomitant]
     Indication: PRODUCT USED FOR UNKNOWN INDICATION
  8. AAS [Concomitant]
     Indication: PRODUCT USED FOR UNKNOWN INDICATION

REACTIONS (8)
  - Cerebrovascular accident [Unknown]
  - Hypotension [Unknown]
  - Stress [Unknown]
  - Nervousness [Unknown]
  - Syncope [Recovered/Resolved]
  - Insomnia [Recovered/Resolved]
  - Musculoskeletal stiffness [Recovered/Resolved]
  - Central nervous system lesion [Not Recovered/Not Resolved]
